FAERS Safety Report 15155356 (Version 1)
Quarter: 2018Q3

REPORT INFORMATION
  Report Type: Spontaneous
  Country: US (occurrence: US)
  Receive Date: 20180620
  Receipt Date: 20180620
  Transmission Date: 20181010
  Serious: Yes (Hospitalization, Disabling)
  Sender: FDA-Public Use
  Company Number: None

PATIENT
  Age: 89 Year
  Sex: Male
  Weight: 78.75 kg

DRUGS (10)
  1. COLACE [Concomitant]
     Active Substance: DOCUSATE SODIUM
  2. LUPRON DEPOT [Suspect]
     Active Substance: LEUPROLIDE ACETATE
     Indication: PROSTATE CANCER
     Dosage: ?          QUANTITY:2 INJECTION(S);OTHER FREQUENCY:ONCE;?
     Route: 030
     Dates: start: 20180601, end: 20180601
  3. IBUPROFEN. [Concomitant]
     Active Substance: IBUPROFEN
  4. OMEPRAZOLE. [Concomitant]
     Active Substance: OMEPRAZOLE
  5. CENTRUM [Concomitant]
     Active Substance: VITAMINS
  6. PREDNISONE. [Concomitant]
     Active Substance: PREDNISONE
  7. POTASSIUM [Concomitant]
     Active Substance: POTASSIUM
  8. TYLENOL [Concomitant]
     Active Substance: ACETAMINOPHEN
  9. LIDOCAINE PATCH [Concomitant]
     Active Substance: LIDOCAINE
  10. ZYTIGA [Concomitant]
     Active Substance: ABIRATERONE ACETATE

REACTIONS (8)
  - Overdose [None]
  - Confusional state [None]
  - Incontinence [None]
  - Muscular weakness [None]
  - Fatigue [None]
  - Pyrexia [None]
  - Lethargy [None]
  - Fall [None]

NARRATIVE: CASE EVENT DATE: 20180601
